FAERS Safety Report 5698791-5 (Version None)
Quarter: 2008Q2

REPORT INFORMATION
  Report Type: 
  Country: None (occurrence: None)
  Receive Date: 20080404
  Receipt Date: 20080111
  Transmission Date: 20081010
  Serious: Yes (Hospitalization, Disabling, Other)
  Sender: FDA-Public Use
  Company Number: 2007JP005642

PATIENT
  Age: 55 Year
  Sex: Female
  Weight: 49.8 kg

DRUGS (13)
  1. TACROLIMUS [Suspect]
     Indication: LUPUS NEPHRITIS
     Dosage: 1 MG, UNKNOWN/D, ORAL; 2 MG, UNKNOWN/D, ORAL; 3 MG, UNKNOWN/D, ORAL; 4 MG, UNKNOWN/D, ORAL
     Route: 048
     Dates: start: 20070509, end: 20070517
  2. TACROLIMUS [Suspect]
     Indication: LUPUS NEPHRITIS
     Dosage: 1 MG, UNKNOWN/D, ORAL; 2 MG, UNKNOWN/D, ORAL; 3 MG, UNKNOWN/D, ORAL; 4 MG, UNKNOWN/D, ORAL
     Route: 048
     Dates: start: 20070518, end: 20070520
  3. TACROLIMUS [Suspect]
     Indication: LUPUS NEPHRITIS
     Dosage: 1 MG, UNKNOWN/D, ORAL; 2 MG, UNKNOWN/D, ORAL; 3 MG, UNKNOWN/D, ORAL; 4 MG, UNKNOWN/D, ORAL
     Route: 048
     Dates: start: 20070521, end: 20070730
  4. TACROLIMUS [Suspect]
     Indication: LUPUS NEPHRITIS
     Dosage: 1 MG, UNKNOWN/D, ORAL; 2 MG, UNKNOWN/D, ORAL; 3 MG, UNKNOWN/D, ORAL; 4 MG, UNKNOWN/D, ORAL
     Route: 048
     Dates: start: 20070731, end: 20070918
  5. PREDNISOLONE [Suspect]
     Indication: LUPUS NEPHRITIS
     Dosage: 10 MG, UNKNOWN/D, ORAL
     Route: 048
  6. LIPITOR [Concomitant]
  7. LANSOPRAZOLE [Concomitant]
  8. ASPIRIN [Concomitant]
  9. ALFAROL (ALFACALCIDOL) [Concomitant]
  10. ASPARA K (ASPARTATE POTASSIUM) [Concomitant]
  11. CALCIUM LACTATE (CALCIUM LACTATE) [Concomitant]
  12. MITIGLINIDE (MITIGLINIDE) [Concomitant]
  13. SELBEX (TEPRENONE) [Concomitant]

REACTIONS (8)
  - DIABETES MELLITUS [None]
  - GLYCOSYLATED HAEMOGLOBIN INCREASED [None]
  - LUNG INFECTION [None]
  - NEPHRITIS INTERSTITIAL [None]
  - PLEURAL EFFUSION [None]
  - PYREXIA [None]
  - RENAL IMPAIRMENT [None]
  - UNDERDOSE [None]
